FAERS Safety Report 12827435 (Version 1)
Quarter: 2016Q4

REPORT INFORMATION
  Report Type: Spontaneous
  Country: US (occurrence: US)
  Receive Date: 20161007
  Receipt Date: 20161007
  Transmission Date: 20170207
  Serious: No
  Sender: FDA-Public Use
  Company Number: US-WATSON-2015-27121

PATIENT
  Sex: Female

DRUGS (1)
  1. FENTANYL-25 (WATSON LABORATORIES) [Suspect]
     Active Substance: FENTANYL
     Indication: PAIN
     Dosage: 25 MCG, Q1H, 1 PATCH EVERY 72 HOURS
     Route: 062

REACTIONS (6)
  - Withdrawal syndrome [Unknown]
  - Formication [Unknown]
  - Insomnia [Unknown]
  - Mental disorder [Unknown]
  - Urticaria [Unknown]
  - Feeling hot [Unknown]
